FAERS Safety Report 16872799 (Version 1)
Quarter: 2019Q4

REPORT INFORMATION
  Report Type: Spontaneous
  Country: CN (occurrence: CN)
  Receive Date: 20191001
  Receipt Date: 20191001
  Transmission Date: 20200122
  Serious: Yes (Other)
  Sender: FDA-Public Use
  Company Number: CN-ROCHE-2415196

PATIENT
  Age: 51 Year
  Sex: Male

DRUGS (15)
  1. OXALIPLATIN. [Concomitant]
     Active Substance: OXALIPLATIN
     Route: 065
     Dates: start: 20180920, end: 20190112
  2. TRASTUZUMAB. [Suspect]
     Active Substance: TRASTUZUMAB
     Indication: ADENOCARCINOMA GASTRIC
     Route: 065
     Dates: start: 201801, end: 201807
  3. XELODA [Suspect]
     Active Substance: CAPECITABINE
     Route: 048
     Dates: start: 20190218
  4. OXALIPLATIN. [Concomitant]
     Active Substance: OXALIPLATIN
     Indication: ADENOCARCINOMA GASTRIC
     Route: 065
     Dates: start: 20180825
  5. PACLITAXEL. [Concomitant]
     Active Substance: PACLITAXEL
     Indication: ADENOCARCINOMA GASTRIC
     Route: 065
     Dates: start: 201801, end: 201807
  6. PEMBROLIZUMAB. [Concomitant]
     Active Substance: PEMBROLIZUMAB
     Route: 065
     Dates: start: 20190411
  7. XELODA [Suspect]
     Active Substance: CAPECITABINE
     Indication: ADENOCARCINOMA GASTRIC
     Route: 048
     Dates: start: 20180825
  8. XELODA [Suspect]
     Active Substance: CAPECITABINE
     Route: 048
     Dates: start: 20180920, end: 20190112
  9. PEMBROLIZUMAB. [Concomitant]
     Active Substance: PEMBROLIZUMAB
     Indication: ADENOCARCINOMA GASTRIC
     Route: 065
     Dates: start: 20180920, end: 20190112
  10. EVEROLIMUS. [Concomitant]
     Active Substance: EVEROLIMUS
     Indication: ADENOCARCINOMA GASTRIC
     Route: 065
     Dates: start: 20190513
  11. PACLITAXEL ALBUMIN [Concomitant]
     Active Substance: PACLITAXEL
     Indication: ADENOCARCINOMA GASTRIC
     Route: 065
     Dates: start: 20190723
  12. IRINOTECAN [Concomitant]
     Active Substance: IRINOTECAN
     Indication: ADENOCARCINOMA GASTRIC
     Route: 065
     Dates: start: 20190314
  13. PEMBROLIZUMAB. [Concomitant]
     Active Substance: PEMBROLIZUMAB
     Route: 065
     Dates: start: 20190218
  14. RALTITREXED [Concomitant]
     Active Substance: RALTITREXED
     Indication: ADENOCARCINOMA GASTRIC
     Route: 065
     Dates: start: 20190314
  15. TEGAFUR [Concomitant]
     Active Substance: TEGAFUR
     Indication: ADENOCARCINOMA GASTRIC
     Route: 065
     Dates: start: 201801, end: 201807

REACTIONS (5)
  - Urinary retention [Unknown]
  - Cholecystitis [Unknown]
  - Hepatic cyst [Unknown]
  - Weight decreased [Unknown]
  - Scrotal oedema [Unknown]

NARRATIVE: CASE EVENT DATE: 2019
